FAERS Safety Report 25612753 (Version 3)
Quarter: 2025Q3

REPORT INFORMATION
  Report Type: Spontaneous
  Country: US (occurrence: US)
  Receive Date: 20250728
  Receipt Date: 20250808
  Transmission Date: 20251021
  Serious: Yes (Life-Threatening, Hospitalization, Other)
  Sender: PFIZER
  Company Number: US-MLMSERVICE-20250716-PI581866-00312-1

PATIENT
  Age: 49 Year
  Sex: Male

DRUGS (2)
  1. TESTOSTERONE CYPIONATE [Suspect]
     Active Substance: TESTOSTERONE CYPIONATE
     Indication: Medical anabolic therapy
  2. LEVOTHYROXINE [Concomitant]
     Active Substance: LEVOTHYROXINE
     Indication: Hypothyroidism

REACTIONS (5)
  - Drug abuse [Recovering/Resolving]
  - Polycythaemia [Unknown]
  - Cerebral venous sinus thrombosis [Unknown]
  - Subarachnoid haemorrhage [Recovering/Resolving]
  - Off label use [Unknown]
